FAERS Safety Report 5365509-5 (Version None)
Quarter: 2007Q2

REPORT INFORMATION
  Report Type: 
  Country: None (occurrence: None)
  Receive Date: 20070621
  Receipt Date: 20070618
  Transmission Date: 20071010
  Serious: Yes (Life-Threatening, Hospitalization, Other)
  Sender: FDA-Public Use
  Company Number: A0648618A

PATIENT
  Age: 55 Year
  Sex: Female
  Weight: 148 kg

DRUGS (6)
  1. AVANDIA [Suspect]
     Indication: DIABETES MELLITUS NON-INSULIN-DEPENDENT
     Dosage: 4MG TWICE PER DAY
     Route: 048
  2. GLUCOVANCE [Suspect]
  3. LISINOPRIL [Concomitant]
     Dosage: 10MG PER DAY
     Route: 048
  4. ASPIRIN [Concomitant]
     Dosage: 81MG PER DAY
  5. CELEXA [Concomitant]
     Dosage: 40MG PER DAY
  6. GABAPENTIN [Concomitant]
     Dosage: 600MG AT NIGHT

REACTIONS (8)
  - BLOOD GLUCOSE DECREASED [None]
  - CARDIAC FAILURE CONGESTIVE [None]
  - DYSPNOEA [None]
  - HYPOGLYCAEMIA [None]
  - HYPOXIA [None]
  - OEDEMA PERIPHERAL [None]
  - PULMONARY OEDEMA [None]
  - WEIGHT INCREASED [None]
